FAERS Safety Report 6073885-3 (Version None)
Quarter: 2009Q1

REPORT INFORMATION
  Report Type: 
  Country: None (occurrence: None)
  Receive Date: 20090121
  Receipt Date: 20080313
  Transmission Date: 20090719
  Serious: Yes (Other)
  Sender: FDA-Public Use
  Company Number: HQWYE295121JUL04

PATIENT
  Age: 55 Year
  Sex: Female
  Weight: 68.1 kg

DRUGS (5)
  1. PREMPRO [Suspect]
     Indication: MENOPAUSE
     Dosage: 0.625 MG/2.5 MG DAILY, ORAL
     Route: 048
     Dates: start: 19960101, end: 20020101
  2. ALPHAGAN (BROMINIDINE TARTRATE) [Concomitant]
  3. XALATAN [Concomitant]
  4. CELEBREX [Concomitant]
  5. BETOPTIC [Concomitant]

REACTIONS (1)
  - BREAST CANCER [None]
